FAERS Safety Report 10098539 (Version 1)
Quarter: 2014Q2

REPORT INFORMATION
  Report Type: Spontaneous
  Country: DK (occurrence: FR)
  Receive Date: 20140423
  Receipt Date: 20140423
  Transmission Date: 20141212
  Serious: Yes (Hospitalization)
  Sender: FDA-Public Use
  Company Number: FR-FRI-1000066751

PATIENT
  Age: 90 Year
  Sex: Female

DRUGS (3)
  1. MEMANTINE [Suspect]
     Indication: NEURODEGENERATIVE DISORDER
     Dosage: 5 MG
     Route: 048
     Dates: start: 201308, end: 201309
  2. MEMANTINE [Suspect]
     Indication: MEMORY IMPAIRMENT
     Dosage: 10 MG
     Route: 048
  3. MONOTILDIEM [Concomitant]
     Indication: CARDIAC DISORDER

REACTIONS (5)
  - Fatigue [Unknown]
  - Gait disturbance [Unknown]
  - Vomiting [Unknown]
  - Crying [Unknown]
  - Blood creatine phosphokinase increased [Unknown]
